FAERS Safety Report 26006862 (Version 1)
Quarter: 2025Q4

REPORT INFORMATION
  Report Type: Spontaneous
  Country: US (occurrence: None)
  Receive Date: 20251105
  Receipt Date: 20251105
  Transmission Date: 20260119
  Serious: Yes (Hospitalization)
  Sender: FDA-CTU
  Company Number: None

PATIENT
  Age: 67 Year
  Sex: Male

DRUGS (3)
  1. TAVNEOS [Suspect]
     Active Substance: AVACOPAN
     Route: 048
     Dates: start: 20220701
  2. RITUXAN [Suspect]
     Active Substance: RITUXIMAB
  3. TAVNEOS [Concomitant]
     Active Substance: AVACOPAN
     Dates: start: 20220701

REACTIONS (4)
  - Alopecia [None]
  - Fatigue [None]
  - Temperature intolerance [None]
  - Increased tendency to bruise [None]

NARRATIVE: CASE EVENT DATE: 20251105
